FAERS Safety Report 10982971 (Version 4)
Quarter: 2015Q3

REPORT INFORMATION
  Report Type: Spontaneous
  Country: US (occurrence: None)
  Receive Date: 20150401
  Receipt Date: 20150729
  Transmission Date: 20151125
  Serious: Yes (Other)
  Sender: FDA-Public Use
  Company Number: INT_00700_2015

PATIENT
  Age: 68 Year
  Sex: Female
  Weight: 79 kg

DRUGS (6)
  1. TAXOL [Suspect]
     Active Substance: PACLITAXEL
     Indication: BREAST CANCER FEMALE
     Dosage: (DF)
     Dates: start: 20140212, end: 20140312
  2. NORCO [Concomitant]
     Active Substance: ACETAMINOPHEN\HYDROCODONE BITARTRATE
  3. CYMBALTA [Suspect]
     Active Substance: DULOXETINE HYDROCHLORIDE
     Indication: HYPOAESTHESIA
     Dosage: (DF ORAL)
     Route: 048
     Dates: start: 20140219, end: 20150114
  4. LYRICA [Suspect]
     Active Substance: PREGABALIN
     Indication: NEUROPATHY PERIPHERAL
     Route: 048
     Dates: start: 20150115, end: 20150122
  5. ANASTROZOLE. [Concomitant]
     Active Substance: ANASTROZOLE
  6. ATIVAN [Concomitant]
     Active Substance: LORAZEPAM

REACTIONS (7)
  - Headache [None]
  - Dizziness [None]
  - Neuropathy peripheral [None]
  - Hallucination, auditory [None]
  - Hearing impaired [None]
  - Drug hypersensitivity [None]
  - Feeling abnormal [None]

NARRATIVE: CASE EVENT DATE: 201402
